FAERS Safety Report 15850021 (Version 1)
Quarter: 2019Q1

REPORT INFORMATION
  Report Type: Spontaneous
  Country: US (occurrence: US)
  Receive Date: 20190121
  Receipt Date: 20190121
  Transmission Date: 20190417
  Serious: No
  Sender: FDA-Public Use
  Company Number: US-SA-2019SA013752

PATIENT
  Sex: Male

DRUGS (1)
  1. PRALUENT [Suspect]
     Active Substance: ALIROCUMAB
     Indication: CARDIOVASCULAR DISORDER
     Dosage: 1 ML, QOW
     Route: 058

REACTIONS (4)
  - Drug hypersensitivity [Unknown]
  - Gait disturbance [Unknown]
  - Rash [Unknown]
  - Bone pain [Unknown]
